FAERS Safety Report 5051558-3 (Version None)
Quarter: 2006Q3

REPORT INFORMATION
  Report Type: 
  Country: None (occurrence: None)
  Receive Date: 20060711
  Receipt Date: 20060619
  Transmission Date: 20061208
  Serious: Yes (Other)
  Sender: FDA-Public Use
  Company Number: US200606004397

PATIENT
  Age: 72 Year
  Sex: Female

DRUGS (13)
  1. CYMBALTA [Suspect]
     Indication: DEPRESSION
     Dosage: 60 MG
     Dates: start: 20060101, end: 20060101
  2. BENICAR [Concomitant]
  3. PLAVIX [Concomitant]
  4. TOPAMAX [Concomitant]
  5. LORAZEPAM [Concomitant]
  6. REQUIP [Concomitant]
  7. COMBIVENT [Concomitant]
  8. DETROL [Concomitant]
  9. ZYRTEC [Concomitant]
  10. ANTIBIOTICS [Concomitant]
  11. DUONEB [Concomitant]
  12. CELEBREX [Concomitant]
  13. ASPIRIN TAB [Concomitant]

REACTIONS (8)
  - APPENDICITIS [None]
  - CHILLS [None]
  - CONSTIPATION [None]
  - DIARRHOEA [None]
  - MALAISE [None]
  - MIGRAINE [None]
  - NAUSEA [None]
  - PYREXIA [None]
